FAERS Safety Report 8269484-5 (Version None)
Quarter: 2012Q2

REPORT INFORMATION
  Report Type: 
  Country: None (occurrence: None)
  Receive Date: 20120409
  Receipt Date: 20120330
  Transmission Date: 20120825
  Serious: Yes (Other)
  Sender: FDA-Public Use
  Company Number: JP-VERTEX PHARMACEUTICALS INC.-AE-2012-004795

PATIENT
  Age: 50 Year
  Sex: Male

DRUGS (4)
  1. TELAVIC (TELAPREVIR) [Suspect]
     Indication: HEPATITIS C
     Route: 048
     Dates: start: 20120214
  2. RIBAVIRIN [Concomitant]
     Indication: HEPATITIS C
     Route: 048
     Dates: start: 20120214
  3. PEG-INTRON [Concomitant]
     Dates: start: 20120327
  4. PEG-INTRON [Concomitant]
     Indication: HEPATITIS C
     Route: 051
     Dates: start: 20120201, end: 20120327

REACTIONS (4)
  - HYPERURICAEMIA [None]
  - DRUG ERUPTION [None]
  - PLATELET COUNT DECREASED [None]
  - NEUTROPHIL COUNT DECREASED [None]
